FAERS Safety Report 5053100-X (Version None)
Quarter: 2006Q3

REPORT INFORMATION
  Report Type: 
  Country: None (occurrence: None)
  Receive Date: 20060712
  Receipt Date: 20060623
  Transmission Date: 20061208
  Serious: Yes (Hospitalization)
  Sender: FDA-Public Use
  Company Number: US200602003875

PATIENT
  Age: 78 Year
  Sex: Female

DRUGS (6)
  1. FORTEO [Suspect]
     Indication: OSTEOPOROSIS
     Dates: start: 20060215, end: 20060401
  2. FORTEO [Suspect]
     Dates: start: 20060607, end: 20060601
  3. FORTEO [Concomitant]
  4. FEMARA [Concomitant]
  5. TYLENOL [Concomitant]
  6. CALCIUM GLUCONATE [Concomitant]

REACTIONS (15)
  - ACCIDENTAL OVERDOSE [None]
  - ANXIETY [None]
  - ATRIAL FIBRILLATION [None]
  - CONDITION AGGRAVATED [None]
  - CONTUSION [None]
  - DIARRHOEA [None]
  - FATIGUE [None]
  - INCORRECT DOSE ADMINISTERED [None]
  - INJECTION SITE BRUISING [None]
  - INJECTION SITE HAEMORRHAGE [None]
  - INSOMNIA [None]
  - MEDICATION ERROR [None]
  - PHARMACEUTICAL PRODUCT COMPLAINT [None]
  - SLEEP DISORDER [None]
  - STRESS [None]
